FAERS Safety Report 8388146-7 (Version None)
Quarter: 2012Q2

REPORT INFORMATION
  Report Type: 
  Country: None (occurrence: None)
  Receive Date: 20120525
  Receipt Date: 20120515
  Transmission Date: 20120825
  Serious: Yes (Death)
  Sender: FDA-Public Use
  Company Number: JP-B.I. PHARMACEUTICALS,INC./RIDGEFIELD-2012-BP-10426NB

PATIENT
  Sex: Female

DRUGS (5)
  1. KREMEZIN [Suspect]
     Route: 065
  2. NORVASC [Suspect]
     Route: 065
  3. NEXIUM [Suspect]
     Route: 065
  4. ALLOPURINOL [Suspect]
     Route: 065
  5. TRAZENTA [Suspect]
     Indication: DIABETES MELLITUS
     Dosage: 5 MG
     Route: 048
     Dates: start: 20120501

REACTIONS (1)
  - DEATH [None]
